FAERS Safety Report 17535887 (Version 1)
Quarter: 2020Q1

REPORT INFORMATION
  Report Type: Spontaneous
  Country: US (occurrence: US)
  Receive Date: 20200313
  Receipt Date: 20200313
  Transmission Date: 20200409
  Serious: Yes (Other)
  Sender: FDA-Public Use
  Company Number: US-TEVA-2020-US-1203419

PATIENT
  Age: 54 Year
  Sex: Female

DRUGS (14)
  1. CYCLOBENZAPRINE HCL ORAL TABLET 10MG [Concomitant]
     Route: 048
  2. NEXIUM 24HR CLEAR MINIS ORAL CAPSULE DELAYED RELEASE 20MG [Concomitant]
     Route: 048
  3. SIMVASTATIN ORAL TABLET 40MG [Concomitant]
     Route: 048
  4. REQUIP ORAL TABLET 0.5MG [Concomitant]
     Route: 048
  5. LISINOPRIL ORAL TABLET 10MG [Concomitant]
     Active Substance: LISINOPRIL
     Route: 048
  6. BOTOX COSMETIC INTRAMUSCULAR SOLUTION RECONSTITUTED 100UNIT [Concomitant]
  7. ABILIFY ORAL TABLET 10MG [Concomitant]
     Route: 048
  8. SYNTHROID ORAL TABLET 125CG [Concomitant]
     Route: 048
  9. TRAZODONE HCL ORAL TABLET 150MG [Concomitant]
     Route: 048
  10. COLACE ORAL CAPSULE 100MG [Concomitant]
     Route: 048
  11. SERTRALINE HCL ORAL TABLET 100MG [Concomitant]
     Route: 048
  12. NUVIGIL ORAL TABLET 250MG [Concomitant]
     Route: 048
  13. AUSTEDO [Suspect]
     Active Substance: DEUTETRABENAZINE
     Indication: TARDIVE DYSKINESIA
     Dosage: 12 MILLIGRAM DAILY;
     Route: 048
     Dates: start: 20200306
  14. TOPIRAMATE ORAL TABLET 50MG [Concomitant]
     Route: 048

REACTIONS (2)
  - Feeding disorder [Recovered/Resolved]
  - Tremor [Recovered/Resolved]

NARRATIVE: CASE EVENT DATE: 20200308
